FAERS Safety Report 5277048-0 (Version None)
Quarter: 2007Q1

REPORT INFORMATION
  Report Type: 
  Country: None (occurrence: None)
  Receive Date: 20070327
  Receipt Date: 20070226
  Transmission Date: 20070707
  Serious: No
  Sender: FDA-Public Use
  Company Number: US-BRISTOL-MYERS SQUIBB COMPANY-13693312

PATIENT
  Age: 24 Year
  Sex: Female

DRUGS (6)
  1. ORENCIA [Suspect]
     Indication: RHEUMATOID ARTHRITIS
     Route: 042
  2. METHOTREXATE [Concomitant]
  3. PREDNISONE [Concomitant]
  4. FOSAMAX [Concomitant]
  5. NEXIUM [Concomitant]
  6. PROZAC [Concomitant]

REACTIONS (3)
  - HEADACHE [None]
  - RASH [None]
  - SINUSITIS [None]
